FAERS Safety Report 24147167 (Version 1)
Quarter: 2024Q3

REPORT INFORMATION
  Report Type: Spontaneous
  Country: US (occurrence: US)
  Receive Date: 20240729
  Receipt Date: 20240729
  Transmission Date: 20241017
  Serious: No
  Sender: BAYER
  Company Number: US-BAYER-2024A106894

PATIENT
  Sex: Female

DRUGS (1)
  1. MIRALAX [Suspect]
     Active Substance: POLYETHYLENE GLYCOL 3350
     Indication: Product used for unknown indication
     Dosage: 2 FULL DOSES A DAY FOR 10 DAYS AS PRESCRIBED BY MY DOCTOR.
     Route: 048

REACTIONS (3)
  - Pollakiuria [Unknown]
  - Dehydration [Unknown]
  - Product prescribing issue [None]
